FAERS Safety Report 9957885 (Version 2)
Quarter: 2014Q1

REPORT INFORMATION
  Report Type: Report from Study
  Country: US (occurrence: US)
  Receive Date: 20140304
  Receipt Date: 20140304
  Transmission Date: 20141002
  Serious: No
  Sender: FDA-Public Use
  Company Number: US-ABBVIE-13P-163-1066130-00

PATIENT
  Age: 59 Year
  Sex: Female
  Weight: 97.61 kg

DRUGS (1)
  1. HUMIRA [Suspect]
     Indication: RHEUMATOID ARTHRITIS
     Dates: start: 20130314, end: 20130314

REACTIONS (29)
  - Hypersensitivity [Recovering/Resolving]
  - Injection site pain [Recovered/Resolved]
  - Pain in extremity [Recovered/Resolved]
  - Muscle spasms [Recovered/Resolved]
  - Nausea [Recovered/Resolved]
  - Dyspepsia [Recovered/Resolved]
  - Abdominal discomfort [Recovered/Resolved]
  - Vomiting [Recovered/Resolved]
  - Injection site bruising [Recovering/Resolving]
  - Injection site swelling [Recovered/Resolved]
  - Injection site bruising [Recovered/Resolved]
  - Rash pruritic [Not Recovered/Not Resolved]
  - Rash pruritic [Not Recovered/Not Resolved]
  - Rash pruritic [Not Recovered/Not Resolved]
  - Arthralgia [Recovering/Resolving]
  - Arthralgia [Recovering/Resolving]
  - Arthritis [Recovered/Resolved]
  - Musculoskeletal pain [Recovered/Resolved]
  - Unevaluable event [Recovered/Resolved]
  - Hypokinesia [Recovered/Resolved]
  - Hypokinesia [Recovered/Resolved]
  - Hypokinesia [Recovered/Resolved]
  - Injection site rash [Recovered/Resolved]
  - Injection site bruising [Recovered/Resolved]
  - Arthralgia [Recovered/Resolved]
  - Hypersensitivity [Recovering/Resolving]
  - Erythema [Unknown]
  - Injection site discolouration [Not Recovered/Not Resolved]
  - Skin warm [Recovered/Resolved]
